FAERS Safety Report 9518457 (Version 1)
Quarter: 2013Q1

REPORT INFORMATION
  Report Type: Spontaneous
  Country: US (occurrence: None)
  Receive Date: 20130305
  Receipt Date: 20130305
  Transmission Date: 20140127
  Serious: Yes (Other)
  Sender: FDA-Public Use
  Company Number: 163-21880-12081056

PATIENT
  Age: 85 Year
  Sex: Male

DRUGS (8)
  1. REVLIMID (LENALIDOMIDE) [Suspect]
     Indication: PLASMA CELL MYELOMA
     Dosage: 25 MG, 14 IN 14 D, PO
     Route: 048
     Dates: start: 20120608
  2. METRONIDAZOLE(METRONIDAZOLE) [Concomitant]
  3. VELCADE(BORTEZOMIB) [Concomitant]
  4. DRONABINOL(DRONABINOL) [Concomitant]
  5. METRONIDAZOLE(METRONIDAZOLE) [Concomitant]
  6. VELCADE(BERTEZOMIB) [Concomitant]
  7. CIPRO(CIPROFLOXACIN) [Concomitant]
  8. ASPIRIN EC LOW DOSE (ACETYLSALICYLIC ACID) [Concomitant]

REACTIONS (1)
  - Rash generalised [None]
